FAERS Safety Report 4603026-8 (Version None)
Quarter: 2005Q1

REPORT INFORMATION
  Report Type: 
  Country: None (occurrence: None)
  Receive Date: 20050309
  Receipt Date: 20040623
  Transmission Date: 20050727
  Serious: Yes (Death, Disabling, Other)
  Sender: FDA-Public Use
  Company Number: PHBS2004AT08370

PATIENT
  Age: 51 Year
  Sex: Female

DRUGS (4)
  1. PAMIDRONATE DISODIUM [Suspect]
     Indication: HYPERCALCAEMIA OF MALIGNANCY
     Dosage: 120 MG, UNK
     Route: 042
  2. DOXORUBICIN [Concomitant]
     Dosage: 75 MG/M2, UNK
  3. DOCETAXEL [Concomitant]
     Dosage: 75 MG/M2, UNK
  4. ZOLEDRONATE [Concomitant]

REACTIONS (5)
  - CONFUSIONAL STATE [None]
  - DRUG INEFFECTIVE [None]
  - DRUG RESISTANCE [None]
  - MALIGNANT NEOPLASM PROGRESSION [None]
  - METASTASES TO CENTRAL NERVOUS SYSTEM [None]
